FAERS Safety Report 6597054-3 (Version None)
Quarter: 2010Q1

REPORT INFORMATION
  Report Type: 
  Country: None (occurrence: None)
  Receive Date: 20100223
  Receipt Date: 20100220
  Transmission Date: 20100710
  Serious: Yes (Other)
  Sender: FDA-Public Use
  Company Number: A0845749A

PATIENT
  Age: 54 Year
  Sex: Female
  Weight: 103.8 kg

DRUGS (6)
  1. PAZOPANIB [Suspect]
     Dosage: 800MG PER DAY
     Route: 048
     Dates: start: 20090618, end: 20091202
  2. ATIVAN [Concomitant]
     Dosage: 1MG AS REQUIRED
     Route: 048
  3. VITAMIN B-12 [Concomitant]
     Route: 048
  4. CELEXA [Concomitant]
     Dosage: 20MG PER DAY
     Route: 048
  5. OCTREOTIDE ACETATE [Concomitant]
     Dosage: 40MG MONTHLY
     Route: 030
  6. OXYCODONE [Concomitant]
     Dosage: 5MG AS REQUIRED
     Route: 048

REACTIONS (7)
  - DEHYDRATION [None]
  - LOSS OF CONSCIOUSNESS [None]
  - ORTHOSTATIC HYPOTENSION [None]
  - PRESYNCOPE [None]
  - PULMONARY EMBOLISM [None]
  - SYNCOPE [None]
  - VENA CAVA THROMBOSIS [None]
